FAERS Safety Report 10100009 (Version 1)
Quarter: 2014Q2

REPORT INFORMATION
  Report Type: Spontaneous
  Country: GB (occurrence: GB)
  Receive Date: 20140423
  Receipt Date: 20140423
  Transmission Date: 20141212
  Serious: Yes (Other)
  Sender: FDA-Public Use
  Company Number: GB-ACTAVIS-2014-07909

PATIENT
  Sex: 0

DRUGS (2)
  1. CAPECITABINE (UNKNOWN) [Suspect]
     Indication: BREAST CANCER METASTATIC
     Dosage: 2000/1500 MG, BID (2/DAY), DAY 1 TO DAY 14, 2 CYCLES AT 12 HOURS
     Route: 065
     Dates: end: 20050216
  2. VINORELBINE (UNKNOWN) [Suspect]
     Indication: BREAST CANCER METASTATIC
     Dosage: 40 MG, 2 CYCLES
     Route: 042

REACTIONS (2)
  - Gastrointestinal toxicity [Unknown]
  - Haematotoxicity [Unknown]
